FAERS Safety Report 19424751 (Version 2)
Quarter: 2021Q3

REPORT INFORMATION
  Report Type: Spontaneous
  Country: US (occurrence: US)
  Receive Date: 20210616
  Receipt Date: 20210803
  Transmission Date: 20211014
  Serious: No
  Sender: FDA-Public Use
  Company Number: US-SK LIFE SCIENCE, INC-SKPVG-2020-000516

PATIENT

DRUGS (8)
  1. XCOPRI [Suspect]
     Active Substance: CENOBAMATE
     Dosage: 150 MILLIGRAM, QD,1 TABLET
     Route: 048
     Dates: start: 2020
  2. XCOPRI [Suspect]
     Active Substance: CENOBAMATE
     Dosage: 50 MILLIGRAM, QHS
     Route: 048
     Dates: start: 202009
  3. XCOPRI [Suspect]
     Active Substance: CENOBAMATE
     Dosage: 50 MILLIGRAM, QD
     Route: 048
  4. LEVOTHYROXINE. [Concomitant]
     Active Substance: LEVOTHYROXINE
     Indication: PRODUCT USED FOR UNKNOWN INDICATION
     Route: 065
  5. XCOPRI [Suspect]
     Active Substance: CENOBAMATE
     Dosage: 100 MILLIGRAM, QD
     Route: 048
  6. ZONISAMIDE. [Suspect]
     Active Substance: ZONISAMIDE
     Indication: PRODUCT USED FOR UNKNOWN INDICATION
     Dosage: UNK
     Route: 065
  7. XCOPRI [Suspect]
     Active Substance: CENOBAMATE
     Indication: SEIZURE
     Dosage: UNK
     Route: 048
     Dates: start: 20200723
  8. XCOPRI [Suspect]
     Active Substance: CENOBAMATE
     Dosage: 100 MILLIGRAM, QD
     Route: 048
     Dates: start: 2020

REACTIONS (9)
  - Stress [Not Recovered/Not Resolved]
  - Disorientation [Not Recovered/Not Resolved]
  - Product dose omission issue [Unknown]
  - Seizure [Unknown]
  - Clumsiness [Recovered/Resolved]
  - Muscular weakness [Not Recovered/Not Resolved]
  - Feeling abnormal [Unknown]
  - Somnolence [Recovering/Resolving]
  - Stupor [Recovered/Resolved]

NARRATIVE: CASE EVENT DATE: 2020
